FAERS Safety Report 7237297-9 (Version None)
Quarter: 2011Q1

REPORT INFORMATION
  Report Type: 
  Country: None (occurrence: None)
  Receive Date: 20110121
  Receipt Date: 20110111
  Transmission Date: 20110831
  Serious: Yes (Hospitalization, Other)
  Sender: FDA-Public Use
  Company Number: AR-JNJFOC-20100907310

PATIENT
  Sex: Female
  Weight: 67 kg

DRUGS (9)
  1. GOLIMUMAB [Suspect]
     Route: 058
  2. ARTRAIT [Concomitant]
     Route: 048
  3. NORDETTE-28 [Concomitant]
     Route: 048
  4. ACIFOL [Concomitant]
     Route: 048
  5. GOLIMUMAB [Suspect]
     Indication: RHEUMATOID ARTHRITIS
     Route: 058
  6. ARTRAIT [Concomitant]
     Route: 048
  7. METHOTREXATE [Suspect]
     Indication: RHEUMATOID ARTHRITIS
     Route: 048
  8. ENALAPRIL [Concomitant]
     Indication: HYPERTENSION
     Route: 048
  9. ARTRAIT [Concomitant]
     Route: 048

REACTIONS (1)
  - CEREBRAL HAEMORRHAGE [None]
